FAERS Safety Report 13564977 (Version 4)
Quarter: 2017Q2

REPORT INFORMATION
  Report Type: Spontaneous
  Country: IE (occurrence: IE)
  Receive Date: 20170519
  Receipt Date: 20170609
  Transmission Date: 20170830
  Serious: Yes (Hospitalization, Other)
  Sender: FDA-Public Use
  Company Number: IE-SA-2017SA086365

PATIENT
  Age: 30 Year
  Sex: Female

DRUGS (3)
  1. LEMTRADA [Suspect]
     Active Substance: ALEMTUZUMAB
     Indication: MULTIPLE SCLEROSIS
     Route: 041
     Dates: start: 201511, end: 201511
  2. LEMTRADA [Suspect]
     Active Substance: ALEMTUZUMAB
     Indication: MULTIPLE SCLEROSIS
     Route: 041
     Dates: end: 201611
  3. PONSTAN [Concomitant]
     Active Substance: MEFENAMIC ACID

REACTIONS (8)
  - Malaise [Unknown]
  - Lethargy [Unknown]
  - Nephropathy [Not Recovered/Not Resolved]
  - Nausea [Not Recovered/Not Resolved]
  - Goodpasture^s syndrome [Unknown]
  - Headache [Not Recovered/Not Resolved]
  - Renal failure [Not Recovered/Not Resolved]
  - Headache [Unknown]

NARRATIVE: CASE EVENT DATE: 2017
